FAERS Safety Report 8362487-1 (Version None)
Quarter: 2012Q2

REPORT INFORMATION
  Report Type: 
  Country: None (occurrence: None)
  Receive Date: 20120514
  Receipt Date: 20120514
  Transmission Date: 20120825
  Serious: Yes (Other)
  Sender: FDA-Public Use
  Company Number: None

PATIENT
  Sex: Male
  Weight: 66.17 kg

DRUGS (1)
  1. YERVOY [Suspect]

REACTIONS (19)
  - OCULAR ICTERUS [None]
  - PULMONARY HAEMORRHAGE [None]
  - ASTHENIA [None]
  - BLOOD TRIGLYCERIDES INCREASED [None]
  - HYPOXIA [None]
  - BLOOD BILIRUBIN INCREASED [None]
  - RALES [None]
  - HYPONATRAEMIA [None]
  - RENAL FAILURE ACUTE [None]
  - COUGH [None]
  - ANAEMIA [None]
  - PNEUMONIA [None]
  - JAUNDICE [None]
  - HEPATOMEGALY [None]
  - METASTASES TO LIVER [None]
  - DRUG-INDUCED LIVER INJURY [None]
  - HEPATIC ENCEPHALOPATHY [None]
  - INTERNATIONAL NORMALISED RATIO INCREASED [None]
  - HEPATIC FUNCTION ABNORMAL [None]
